FAERS Safety Report 12272352 (Version 3)
Quarter: 2016Q2

REPORT INFORMATION
  Report Type: Spontaneous
  Country: JP (occurrence: JP)
  Receive Date: 20160415
  Receipt Date: 20160526
  Transmission Date: 20160815
  Serious: Yes (Life-Threatening, Hospitalization, Other)
  Sender: FDA-Public Use
  Company Number: JP-GILEAD-2016-0207993

PATIENT
  Age: 62 Year
  Sex: Male

DRUGS (9)
  1. HARVONI [Suspect]
     Active Substance: LEDIPASVIR\SOFOSBUVIR
     Indication: CHRONIC HEPATITIS C
     Dosage: 1 DF, UNK
     Route: 048
     Dates: start: 20160223, end: 20160407
  2. CONIEL [Concomitant]
     Active Substance: BENIDIPINE HYDROCHLORIDE
  3. SALIGREN [Concomitant]
  4. CELECOX [Concomitant]
     Active Substance: CELECOXIB
  5. DAONIL [Concomitant]
     Active Substance: GLYBURIDE
  6. URSO [Concomitant]
     Active Substance: URSODIOL
  7. OMEPRAZOLE. [Concomitant]
     Active Substance: OMEPRAZOLE
  8. AMLODIPINE [Concomitant]
     Active Substance: AMLODIPINE BESYLATE
     Indication: HYPERTENSION
     Dosage: 5 MG, UNK
     Route: 048
     Dates: start: 20160223
  9. VITAMEDIN                          /00176001/ [Concomitant]

REACTIONS (1)
  - Brain stem haemorrhage [Recovered/Resolved]

NARRATIVE: CASE EVENT DATE: 20160407
